FAERS Safety Report 23517282 (Version 2)
Quarter: 2024Q2

REPORT INFORMATION
  Report Type: Spontaneous
  Country: US (occurrence: US)
  Receive Date: 20240213
  Receipt Date: 20240621
  Transmission Date: 20240716
  Serious: No
  Sender: FDA-Public Use
  Company Number: US-ELI_LILLY_AND_COMPANY-US202402006831

PATIENT
  Age: 50 Year
  Sex: Female

DRUGS (2)
  1. TALTZ [Suspect]
     Active Substance: IXEKIZUMAB
     Indication: Spinal osteoarthritis
     Dosage: 80 MG, OTHER (EVERY 20 DAY)
     Route: 058
     Dates: start: 20231128
  2. TALTZ [Suspect]
     Active Substance: IXEKIZUMAB
     Dosage: 80 MG, OTHER (EVERY 4 WEEKS)
     Route: 058

REACTIONS (4)
  - Inappropriate schedule of product administration [Unknown]
  - Extra dose administered [Unknown]
  - Off label use [Unknown]
  - Tinea pedis [Unknown]

NARRATIVE: CASE EVENT DATE: 20240117
